FAERS Safety Report 8516592-7 (Version None)
Quarter: 2012Q3

REPORT INFORMATION
  Report Type: 
  Country: None (occurrence: None)
  Receive Date: 20120718
  Receipt Date: 20120627
  Transmission Date: 20120928
  Serious: Yes (Hospitalization)
  Sender: FDA-Public Use
  Company Number: JP-MSD-2012SP036727

PATIENT
  Age: 57 Year
  Sex: Male

DRUGS (4)
  1. MK-0805 [Concomitant]
     Indication: CARDIAC FAILURE
  2. DILTIAZEM [Concomitant]
     Indication: CARDIAC FAILURE
  3. AMIODARONE HYDROCHLORIDE [Concomitant]
     Indication: CARDIAC FAILURE
  4. CLARITIN [Suspect]
     Indication: SEASONAL ALLERGY
     Dosage: 10 MG, UNK
     Route: 048

REACTIONS (7)
  - TORSADE DE POINTES [None]
  - CARDIAC FAILURE [None]
  - VENTRICULAR EXTRASYSTOLES [None]
  - SYNCOPE [None]
  - PULMONARY CONGESTION [None]
  - ATRIAL FIBRILLATION [None]
  - ELECTROCARDIOGRAM QT PROLONGED [None]
